FAERS Safety Report 15403648 (Version 10)
Quarter: 2019Q2

REPORT INFORMATION
  Report Type: Report from Study
  Country: CA (occurrence: CA)
  Receive Date: 20180919
  Receipt Date: 20190604
  Transmission Date: 20190711
  Serious: Yes (Other)
  Sender: FDA-Public Use
  Company Number: CA-BRISTOL-MYERS SQUIBB COMPANY-BMS-2018-061328

PATIENT
  Age: 59 Year
  Sex: Female

DRUGS (2)
  1. ACTONEL [Concomitant]
     Active Substance: RISEDRONATE SODIUM
     Indication: PRODUCT USED FOR UNKNOWN INDICATION
     Route: 065
  2. ABATACEPT [Suspect]
     Active Substance: ABATACEPT
     Indication: RHEUMATOID ARTHRITIS
     Dosage: 750 MILLIGRAM, QMO
     Route: 042
     Dates: start: 20141031, end: 20180822

REACTIONS (19)
  - Diarrhoea [Recovering/Resolving]
  - Arthropathy [Unknown]
  - Constipation [Unknown]
  - Oropharyngeal pain [Recovering/Resolving]
  - Vein disorder [Unknown]
  - Pain [Recovering/Resolving]
  - Skin abrasion [Recovering/Resolving]
  - Nasopharyngitis [Recovering/Resolving]
  - Fatigue [Recovering/Resolving]
  - Tinnitus [Unknown]
  - Fall [Recovering/Resolving]
  - Sinusitis [Recovering/Resolving]
  - Poor venous access [Recovering/Resolving]
  - Headache [Recovering/Resolving]
  - Nausea [Recovering/Resolving]
  - Contusion [Recovering/Resolving]
  - Vomiting [Recovering/Resolving]
  - Urinary incontinence [Not Recovered/Not Resolved]
  - Sneezing [Recovering/Resolving]

NARRATIVE: CASE EVENT DATE: 20180601
